FAERS Safety Report 9352243 (Version 2)
Quarter: 2013Q3

REPORT INFORMATION
  Report Type: Spontaneous
  Country: US (occurrence: US)
  Receive Date: 20130617
  Receipt Date: 20130704
  Transmission Date: 20140515
  Serious: Yes (Other)
  Sender: FDA-Public Use
  Company Number: CHPA2013US009896

PATIENT
  Sex: Female

DRUGS (2)
  1. KERI ORIGINAL [Suspect]
     Indication: THERAPEUTIC SKIN CARE TOPICAL
     Dosage: APPLIED AFTER BATHING
     Route: 061
  2. ALPHA-KERI MOISTURE RICH OIL [Suspect]
     Indication: THERAPEUTIC SKIN CARE TOPICAL
     Dosage: IN BATH WATER DAILY
     Route: 061

REACTIONS (2)
  - Femur fracture [Recovered/Resolved]
  - Activities of daily living impaired [Not Recovered/Not Resolved]
